FAERS Safety Report 9058925 (Version 1)
Quarter: 2013Q1

REPORT INFORMATION
  Report Type: Spontaneous
  Country: US (occurrence: US)
  Receive Date: 20130211
  Receipt Date: 20130211
  Transmission Date: 20140127
  Serious: No
  Sender: FDA-Public Use
  Company Number: US-BRISTOL-MYERS SQUIBB COMPANY-16376790

PATIENT
  Age: 72 Year
  Sex: Male
  Weight: 63.5 kg

DRUGS (3)
  1. METFORMIN HCL [Suspect]
     Indication: DIABETES MELLITUS
  2. LANTUS [Suspect]
     Indication: DIABETES MELLITUS
     Dosage: 1 DF = 13UNITS AT BED TIME + 5-6 UNITS IN MORNING?2006-07/2011?07/2011-ONG?100IU/ML
     Route: 058
     Dates: start: 2006
  3. NOVOLOG [Suspect]
     Indication: DIABETES MELLITUS
     Dosage: 1 DF = 1 UNIT

REACTIONS (1)
  - Blood glucose abnormal [Unknown]
